FAERS Safety Report 13993975 (Version 2)
Quarter: 2017Q3

REPORT INFORMATION
  Report Type: Spontaneous
  Country: FR (occurrence: FR)
  Receive Date: 20170916
  Receipt Date: 20170927
  Transmission Date: 20171128
  Serious: Yes (Other)
  Sender: FDA-Public Use
  Company Number: FR-MERCK KGAA-2026536

PATIENT
  Age: 49 Year
  Sex: Female

DRUGS (2)
  1. NOVOTHYROX [Suspect]
     Active Substance: LEVOTHYROXINE SODIUM
     Indication: THYROIDECTOMY
     Route: 048
     Dates: start: 201706
  2. COLPRONE(MEDROGESTONE) (5 MILLIGRAM, TABLET) (MEDROGESTONE) [Concomitant]
     Route: 048

REACTIONS (3)
  - Fatigue [Not Recovered/Not Resolved]
  - Palpitations [Not Recovered/Not Resolved]
  - Insomnia [Not Recovered/Not Resolved]

NARRATIVE: CASE EVENT DATE: 201707
